FAERS Safety Report 14342408 (Version 2)
Quarter: 2018Q1

REPORT INFORMATION
  Report Type: Spontaneous
  Country: DE (occurrence: DE)
  Receive Date: 20180102
  Receipt Date: 20180130
  Transmission Date: 20180509
  Serious: Yes (Other)
  Sender: FDA-Public Use
  Company Number: DE-BAYER-2017-247627

PATIENT
  Age: 0 Year
  Sex: Female
  Weight: 1.55 kg

DRUGS (1)
  1. JAYDESS [Suspect]
     Active Substance: LEVONORGESTREL
     Dosage: UNK
     Route: 064
     Dates: start: 20150914

REACTIONS (4)
  - Exposure during pregnancy [None]
  - Premature baby [None]
  - Low birth weight baby [None]
  - Foetal growth restriction [None]

NARRATIVE: CASE EVENT DATE: 2017
